APPROVED DRUG PRODUCT: DICYCLOMINE HYDROCHLORIDE
Active Ingredient: DICYCLOMINE HYDROCHLORIDE
Strength: 10MG
Dosage Form/Route: CAPSULE;ORAL
Application: A040319 | Product #001 | TE Code: AB
Applicant: AUROBINDO PHARMA USA INC
Approved: Sep 7, 1999 | RLD: No | RS: No | Type: RX